FAERS Safety Report 8401898-2 (Version None)
Quarter: 2012Q2

REPORT INFORMATION
  Report Type: 
  Country: None (occurrence: None)
  Receive Date: 20120601
  Receipt Date: 20120213
  Transmission Date: 20120825
  Serious: No
  Sender: FDA-Public Use
  Company Number: US-ABBOTT-11P-163-0876994-00

PATIENT
  Sex: Male
  Weight: 63.56 kg

DRUGS (8)
  1. MARINOL [Suspect]
     Indication: PAIN
     Route: 048
     Dates: start: 20110801
  2. LYRICA [Concomitant]
     Indication: NEUROPATHY PERIPHERAL
  3. PREZISTA [Concomitant]
     Indication: HIV INFECTION
  4. LISINOPRIL [Concomitant]
     Indication: HYPERTENSION
  5. NORVIR [Concomitant]
     Indication: HIV INFECTION
  6. ZOLPIDEM [Concomitant]
     Indication: PRODUCT USED FOR UNKNOWN INDICATION
     Dosage: AT BEDTIME
  7. MARINOL [Suspect]
     Indication: INCREASED APPETITE
  8. TRUVADA [Concomitant]
     Indication: HIV INFECTION

REACTIONS (6)
  - VISION BLURRED [None]
  - FATIGUE [None]
  - NAUSEA [None]
  - DRY MOUTH [None]
  - OCULAR HYPERAEMIA [None]
  - NASOPHARYNGITIS [None]
